FAERS Safety Report 14215936 (Version 1)
Quarter: 2017Q4

REPORT INFORMATION
  Report Type: Spontaneous
  Country: FR (occurrence: FR)
  Receive Date: 20171122
  Receipt Date: 20171122
  Transmission Date: 20180321
  Serious: Yes (Hospitalization, Other)
  Sender: FDA-Public Use
  Company Number: FR-UCBSA-2017046088

PATIENT
  Age: 42 Year
  Sex: Female

DRUGS (3)
  1. SPECIAFOLDINE [Concomitant]
     Active Substance: FOLIC ACID
     Indication: PROPHYLAXIS
     Dosage: 0.4 DF, ONCE DAILY (QD)
     Route: 048
     Dates: start: 20150909
  2. KEPPRA [Suspect]
     Active Substance: LEVETIRACETAM
     Dosage: 1500 MG PER DAY
     Route: 048
  3. KEPPRA [Suspect]
     Active Substance: LEVETIRACETAM
     Indication: IDIOPATHIC GENERALISED EPILEPSY
     Dosage: 1000 MG, 2X/DAY (BID); STRENGTH: 500 MG
     Route: 048
     Dates: start: 20140925

REACTIONS (3)
  - Abortion spontaneous [Recovered/Resolved]
  - Pregnancy [Unknown]
  - Pre-eclampsia [Recovered/Resolved]

NARRATIVE: CASE EVENT DATE: 2017
